FAERS Safety Report 5049773-8 (Version None)
Quarter: 2006Q3

REPORT INFORMATION
  Report Type: 
  Country: None (occurrence: None)
  Receive Date: 20060707
  Receipt Date: 20060622
  Transmission Date: 20061208
  Serious: Yes (Death)
  Sender: FDA-Public Use
  Company Number: 163-21800-06040900

PATIENT
  Age: 76 Year
  Sex: Female

DRUGS (8)
  1. REVLIMID [Suspect]
     Indication: MULTIPLE MYELOMA
     Dosage: 1 IN 1 D, ORAL
     Route: 048
     Dates: start: 20060228, end: 20060420
  2. ARANESP [Concomitant]
  3. LACTULOSE [Concomitant]
  4. OXYCODONE 2.5/APAP 500 [Concomitant]
  5. LORAZEPAM [Concomitant]
  6. DETROL LA [Concomitant]
  7. ETOPOSIDE [Concomitant]
  8. NEULASTA [Concomitant]

REACTIONS (2)
  - MALIGNANT NEOPLASM PROGRESSION [None]
  - MULTIPLE MYELOMA [None]
